FAERS Safety Report 8299250-6 (Version None)
Quarter: 2012Q2

REPORT INFORMATION
  Report Type: 
  Country: None (occurrence: None)
  Receive Date: 20120419
  Receipt Date: 20120416
  Transmission Date: 20120825
  Serious: No
  Sender: FDA-Public Use
  Company Number: US-PFIZER INC-2012095158

PATIENT

DRUGS (9)
  1. FLEXERIL [Suspect]
     Indication: ARTHRALGIA
  2. FLEXERIL [Suspect]
     Indication: NEURALGIA
  3. CELEBREX [Suspect]
     Indication: ARTHRALGIA
  4. VICODIN [Suspect]
     Indication: PAIN
     Dosage: UNK
  5. VICODIN [Suspect]
     Indication: ARTHRALGIA
  6. VICODIN [Suspect]
     Indication: NEURALGIA
  7. FLEXERIL [Suspect]
     Indication: PAIN
     Dosage: UNK
  8. CELEBREX [Suspect]
     Indication: PAIN
     Dosage: UNK
  9. CELEBREX [Suspect]
     Indication: NEURALGIA

REACTIONS (2)
  - SEDATION [None]
  - PAIN [None]
